FAERS Safety Report 4988970-4 (Version None)
Quarter: 2006Q2

REPORT INFORMATION
  Report Type: 
  Country: None (occurrence: None)
  Receive Date: 20060425
  Receipt Date: 20060412
  Transmission Date: 20061013
  Serious: Yes (Other)
  Sender: FDA-Public Use
  Company Number: 2006050351

PATIENT
  Age: 80 Year
  Sex: Female
  Weight: 97.5234 kg

DRUGS (4)
  1. NEURONTIN [Suspect]
     Indication: NEUROPATHY
     Dosage: 900 MG (300 MG, 3 IN 1 D) ORAL
     Route: 048
  2. ACETYLSALICYLIC ACID SRT [Concomitant]
  3. HYDROCHLOROTHIAZIDE [Concomitant]
  4. VITAMINS [Concomitant]

REACTIONS (6)
  - DIPLOPIA [None]
  - DRUG INEFFECTIVE [None]
  - HEADACHE [None]
  - NASAL DISORDER [None]
  - PAIN [None]
  - SOMNOLENCE [None]
